FAERS Safety Report 22084973 (Version 2)
Quarter: 2023Q2

REPORT INFORMATION
  Report Type: Spontaneous
  Country: US (occurrence: US)
  Receive Date: 20230310
  Receipt Date: 20230502
  Transmission Date: 20230722
  Serious: No
  Sender: FDA-Public Use
  Company Number: US-PFIZER INC-202300100862

PATIENT
  Age: 82 Year
  Sex: Male
  Weight: 90.703 kg

DRUGS (2)
  1. INLYTA [Suspect]
     Active Substance: AXITINIB
     Indication: Neoplasm malignant
     Dosage: 5 MG, 2X/DAY
     Dates: start: 20230220
  2. INLYTA [Suspect]
     Active Substance: AXITINIB
     Dosage: 20 MG, 1X/DAY
     Dates: start: 20230220, end: 20230315

REACTIONS (1)
  - Diarrhoea [Recovered/Resolved]

NARRATIVE: CASE EVENT DATE: 20230306
